FAERS Safety Report 7785965-2 (Version None)
Quarter: 2011Q3

REPORT INFORMATION
  Report Type: 
  Country: None (occurrence: None)
  Receive Date: 20110929
  Receipt Date: 20110708
  Transmission Date: 20111222
  Serious: No
  Sender: FDA-Public Use
  Company Number: US-BAYER-2011-062504

PATIENT
  Age: 88 Year
  Sex: Female
  Weight: 59 kg

DRUGS (4)
  1. LIPITOR [Concomitant]
  2. ALEVE (CAPLET) [Suspect]
     Indication: ANALGESIC THERAPY
     Dosage: 2 TABLETS ONCE DAILY -130 COUNT CAPLETS
     Route: 048
     Dates: start: 20110708
  3. DOXICICLINA [DOXYCYCLINE HYDROCHLORIDE] [Concomitant]
  4. VITAMIN TAB [Concomitant]

REACTIONS (1)
  - PAIN [None]
